FAERS Safety Report 25489623 (Version 1)
Quarter: 2025Q2

REPORT INFORMATION
  Report Type: Spontaneous
  Country: US (occurrence: US)
  Receive Date: 20250627
  Receipt Date: 20250627
  Transmission Date: 20250717
  Serious: Yes (Hospitalization)
  Sender: VERTEX
  Company Number: US-VERTEX PHARMACEUTICALS-2025-010396

PATIENT
  Age: 73 Year
  Sex: Male

DRUGS (2)
  1. IVACAFTOR\LUMACAFTOR [Suspect]
     Active Substance: IVACAFTOR\LUMACAFTOR
     Indication: Cystic fibrosis
     Route: 048
     Dates: start: 201508, end: 201509
  2. OXYGEN [Concomitant]
     Active Substance: OXYGEN
     Dates: start: 201505

REACTIONS (4)
  - Pulmonary haemorrhage [Unknown]
  - Varices oesophageal [Unknown]
  - Infective pulmonary exacerbation of cystic fibrosis [Unknown]
  - Chest discomfort [Unknown]

NARRATIVE: CASE EVENT DATE: 20150101
